FAERS Safety Report 6367291-1 (Version None)
Quarter: 2009Q3

REPORT INFORMATION
  Report Type: 
  Country: None (occurrence: None)
  Receive Date: 20090821
  Receipt Date: 20090620
  Transmission Date: 20100115
  Serious: No
  Sender: FDA-Public Use
  Company Number: 8037706

PATIENT
  Age: 35 Year
  Sex: Female

DRUGS (2)
  1. CIMZIA [Suspect]
     Indication: CROHN'S DISEASE
     Dosage: 400 MG /M SC
     Route: 058
     Dates: start: 20080901, end: 20090401
  2. PREDNISONE [Concomitant]

REACTIONS (2)
  - ERYTHEMA [None]
  - HOT FLUSH [None]
